FAERS Safety Report 15856531 (Version 1)
Quarter: 2019Q1

REPORT INFORMATION
  Report Type: Spontaneous
  Country: CN (occurrence: CN)
  Receive Date: 20190123
  Receipt Date: 20190123
  Transmission Date: 20190417
  Serious: Yes (Other)
  Sender: FDA-Public Use
  Company Number: CN-ROCHE-2247055

PATIENT
  Age: 49 Year
  Sex: Male

DRUGS (17)
  1. EPIRUBICIN [Concomitant]
     Active Substance: EPIRUBICIN
     Dosage: D1 /CYCLE
     Route: 065
     Dates: start: 2013
  2. CISPLATIN. [Concomitant]
     Active Substance: CISPLATIN
     Indication: EXTRANODAL MARGINAL ZONE B-CELL LYMPHOMA (MALT TYPE)
     Route: 065
     Dates: start: 2014, end: 2015
  3. VINCRISTINE [Concomitant]
     Active Substance: VINCRISTINE
     Dosage: D1 /CYCLE
     Route: 065
     Dates: start: 20130301
  4. PREDNISONE. [Concomitant]
     Active Substance: PREDNISONE
     Indication: EXTRANODAL MARGINAL ZONE B-CELL LYMPHOMA (MALT TYPE)
     Dosage: D1-D5/ CYCLE
     Route: 065
     Dates: start: 20120621
  5. CYCLOPHOSPHAMIDE. [Concomitant]
     Active Substance: CYCLOPHOSPHAMIDE
     Indication: EXTRANODAL MARGINAL ZONE B-CELL LYMPHOMA (MALT TYPE)
     Dosage: D1 AND D6/CYCLE
     Route: 065
     Dates: start: 20120621
  6. ETOPOSIDE. [Concomitant]
     Active Substance: ETOPOSIDE
     Indication: EXTRANODAL MARGINAL ZONE B-CELL LYMPHOMA (MALT TYPE)
     Route: 065
     Dates: start: 2014, end: 2015
  7. CYCLOPHOSPHAMIDE. [Concomitant]
     Active Substance: CYCLOPHOSPHAMIDE
     Dosage: D1 /CYCLE
     Route: 065
     Dates: start: 20130301
  8. LIPOSOMAL DOXORUBICIN [Concomitant]
     Active Substance: DOXORUBICIN HYDROCHLORIDE
     Indication: EXTRANODAL MARGINAL ZONE B-CELL LYMPHOMA (MALT TYPE)
     Dosage: D1 AND D6/CYCLE
     Route: 065
     Dates: start: 20120621
  9. DEXAMETHASONE. [Concomitant]
     Active Substance: DEXAMETHASONE
     Indication: EXTRANODAL MARGINAL ZONE B-CELL LYMPHOMA (MALT TYPE)
     Route: 065
     Dates: start: 2014, end: 2015
  10. CYCLOPHOSPHAMIDE. [Concomitant]
     Active Substance: CYCLOPHOSPHAMIDE
     Dosage: D1 / CYCLE
     Route: 065
     Dates: start: 2012
  11. VINCRISTINE [Concomitant]
     Active Substance: VINCRISTINE
     Indication: EXTRANODAL MARGINAL ZONE B-CELL LYMPHOMA (MALT TYPE)
     Dosage: D1/ CYCLE
     Route: 065
     Dates: start: 20120621
  12. EPIRUBICIN [Concomitant]
     Active Substance: EPIRUBICIN
     Indication: EXTRANODAL MARGINAL ZONE B-CELL LYMPHOMA (MALT TYPE)
     Dosage: D1 /CYCLE
     Route: 065
     Dates: start: 20130301
  13. IFOSFAMIDE. [Concomitant]
     Active Substance: IFOSFAMIDE
     Indication: EXTRANODAL MARGINAL ZONE B-CELL LYMPHOMA (MALT TYPE)
     Route: 065
     Dates: start: 2014, end: 2015
  14. RITUXIMAB. [Suspect]
     Active Substance: RITUXIMAB
     Indication: EXTRANODAL MARGINAL ZONE B-CELL LYMPHOMA (MALT TYPE)
     Route: 065
     Dates: start: 20120621
  15. CYCLOPHOSPHAMIDE. [Concomitant]
     Active Substance: CYCLOPHOSPHAMIDE
     Dosage: D1 /CYCLE
     Route: 065
     Dates: start: 2013
  16. LIPOSOMAL DOXORUBICIN [Concomitant]
     Active Substance: DOXORUBICIN HYDROCHLORIDE
     Dosage: 40MG/D1, AND 20 MG/D2, D1 AND D2/CYCLE
     Route: 065
     Dates: start: 2012
  17. PREDNISONE ACETATE [Concomitant]
     Active Substance: PREDNISONE ACETATE
     Indication: EXTRANODAL MARGINAL ZONE B-CELL LYMPHOMA (MALT TYPE)
     Dosage: D1 - D5/CYCLE
     Route: 065
     Dates: start: 20130301

REACTIONS (2)
  - Bone marrow failure [Unknown]
  - Bone marrow failure [Unknown]

NARRATIVE: CASE EVENT DATE: 2013
